FAERS Safety Report 6497843-X (Version None)
Quarter: 2009Q4

REPORT INFORMATION
  Report Type: 
  Country: None (occurrence: None)
  Receive Date: 20091125
  Receipt Date: 20081209
  Transmission Date: 20100525
  Serious: Yes (Other)
  Sender: FDA-Public Use
  Company Number: 2008BH012547

PATIENT
  Age: 68 Year
  Sex: Male
  Weight: 98.9 kg

DRUGS (11)
  1. DIANEAL [Suspect]
     Indication: PERITONEAL DIALYSIS
     Dosage: 12 L ; EVERY DAY ; IP
     Route: 033
     Dates: start: 20080326
  2. AMLODIPINE [Concomitant]
  3. CALCITRIOL [Concomitant]
  4. COUMADIN [Concomitant]
  5. EPOGEN [Concomitant]
  6. LABETALOL HCL [Concomitant]
  7. LIPITOR [Concomitant]
  8. NEPHROCAPS [Concomitant]
  9. OMEGA 3 FATTY ACIDS [Concomitant]
  10. PHOSLO [Concomitant]
  11. VALTREX [Concomitant]

REACTIONS (2)
  - PERITONEAL DIALYSIS COMPLICATION [None]
  - PERITONITIS BACTERIAL [None]
